FAERS Safety Report 4598949-2 (Version None)
Quarter: 2005Q1

REPORT INFORMATION
  Report Type: 
  Country: None (occurrence: None)
  Receive Date: 20050302
  Receipt Date: 20050216
  Transmission Date: 20050727
  Serious: Yes (Hospitalization)
  Sender: FDA-Public Use
  Company Number: 2005BI001371

PATIENT
  Sex: Female

DRUGS (12)
  1. AVONEX [Suspect]
     Indication: MULTIPLE SCLEROSIS
     Dosage: IM
     Route: 030
     Dates: start: 19980201
  2. AVONEX [Suspect]
     Indication: MULTIPLE SCLEROSIS
     Dosage: 30 UG;  QW; IM
     Route: 030
  3. TOPAMAX [Concomitant]
  4. DESIPRAMIDE HCL [Concomitant]
  5. PROVIGIL [Concomitant]
  6. NEURONTIN [Concomitant]
  7. ALEVE [Concomitant]
  8. DILANTIN [Concomitant]
  9. PROZAC [Concomitant]
  10. CALCIUM GLUCONATE [Concomitant]
  11. CARDURA [Concomitant]
  12. IMITREX [Concomitant]

REACTIONS (6)
  - ARTHRALGIA [None]
  - BENIGN NEOPLASM OF THYROID GLAND [None]
  - FRACTURE NONUNION [None]
  - ROTATOR CUFF SYNDROME [None]
  - TOE AMPUTATION [None]
  - TRAUMATIC FRACTURE [None]
